FAERS Safety Report 10440719 (Version 1)
Quarter: 2014Q3

REPORT INFORMATION
  Report Type: Spontaneous
  Country: IT (occurrence: IT)
  Receive Date: 20140909
  Receipt Date: 20140909
  Transmission Date: 20150326
  Serious: Yes (Other)
  Sender: FDA-Public Use
  Company Number: IT-AUROBINDO-AUR-APL-2014-09505

PATIENT
  Age: 59 Year
  Sex: Female

DRUGS (3)
  1. CONTRAMAL [Suspect]
     Active Substance: TRAMADOL HYDROCHLORIDE
     Indication: BACK PAIN
     Dosage: 200 MG, ONCE A DAY
     Route: 048
     Dates: start: 20140720, end: 20140722
  2. TRIATEC                            /00885601/ [Concomitant]
     Active Substance: RAMIPRIL
     Indication: HYPERTENSION
     Dosage: 2.5 MG, UNK
     Route: 048
     Dates: start: 20110901, end: 20140722
  3. PAROXETIN AUROBINDO FILM-COATED TABLET 20MG [Suspect]
     Active Substance: PAROXETINE HYDROCHLORIDE
     Indication: PRODUCT USED FOR UNKNOWN INDICATION
     Dosage: 20 MG, ONCE A DAY
     Route: 048
     Dates: start: 20110901, end: 20140722

REACTIONS (6)
  - Headache [Recovering/Resolving]
  - Paraesthesia [Recovering/Resolving]
  - Facial asymmetry [Recovering/Resolving]
  - Drug interaction [Recovering/Resolving]
  - Syncope [Recovering/Resolving]
  - Vomiting [Recovering/Resolving]

NARRATIVE: CASE EVENT DATE: 20140722
